FAERS Safety Report 14939430 (Version 3)
Quarter: 2019Q2

REPORT INFORMATION
  Report Type: Report from Study
  Country: JP (occurrence: JP)
  Receive Date: 20180525
  Receipt Date: 20190627
  Transmission Date: 20190711
  Serious: Yes (Hospitalization)
  Sender: FDA-Public Use
  Company Number: JP-CELLTRION INC.-2018JP019914

PATIENT

DRUGS (22)
  1. INFLIXIMAB BS FOR I.V. INFUSION100 MG [NK] [Suspect]
     Active Substance: INFLIXIMAB
     Dosage: 400 MG/BODY/DAY
     Route: 042
     Dates: start: 20160913, end: 20160913
  2. INFLIXIMAB BS FOR I.V. INFUSION100 MG [NK] [Suspect]
     Active Substance: INFLIXIMAB
     Dosage: 400 MG/BODY/DAY
     Route: 042
     Dates: start: 20170104, end: 20170104
  3. DOMPERIDONE [Concomitant]
     Active Substance: DOMPERIDONE
     Indication: PROPHYLAXIS
     Dosage: 30 MG/DAY
     Dates: start: 20150610, end: 20180731
  4. INFLIXIMAB BS FOR I.V. INFUSION100 MG [NK] [Suspect]
     Active Substance: INFLIXIMAB
     Dosage: 600 MG/BODY/DAY
     Route: 042
     Dates: start: 20180926, end: 20180926
  5. INFLIXIMAB BS FOR I.V. INFUSION100 MG [NK] [Suspect]
     Active Substance: INFLIXIMAB
     Dosage: 400 MG/BODY/DAY
     Route: 042
     Dates: start: 20161109, end: 20161109
  6. INFLIXIMAB BS FOR I.V. INFUSION100 MG [NK] [Suspect]
     Active Substance: INFLIXIMAB
     Dosage: 600 MG/BODY/DAY
     Route: 042
     Dates: start: 20171025, end: 20171025
  7. INFLIXIMAB BS FOR I.V. INFUSION100 MG [NK] [Suspect]
     Active Substance: INFLIXIMAB
     Dosage: 600 MG/BODY/DAY
     Route: 042
     Dates: start: 20180221, end: 20180221
  8. INFLIXIMAB BS FOR I.V. INFUSION100 MG [NK] [Suspect]
     Active Substance: INFLIXIMAB
     Dosage: 400 MG/BODY/DAY
     Route: 042
     Dates: start: 20170308, end: 20170308
  9. INFLIXIMAB BS FOR I.V. INFUSION100 MG [NK] [Suspect]
     Active Substance: INFLIXIMAB
     Dosage: 400 MG/BODY/DAY
     Route: 042
     Dates: start: 20170705, end: 20170705
  10. INFLIXIMAB BS FOR I.V. INFUSION100 MG [NK] [Suspect]
     Active Substance: INFLIXIMAB
     Indication: CROHN^S DISEASE
     Dosage: 400 MG/BODY/DAY
     Route: 042
     Dates: start: 20160804, end: 20160804
  11. INFLIXIMAB BS FOR I.V. INFUSION100 MG [NK] [Suspect]
     Active Substance: INFLIXIMAB
     Dosage: 400 MG/BODY/DAY
     Route: 042
     Dates: start: 20170510, end: 20170510
  12. DAIKENCHUTO [Concomitant]
     Active Substance: HERBALS
     Indication: GASTRITIS PROPHYLAXIS
     Dosage: 6 DF/DAY
     Dates: start: 20120910
  13. ELENTAL [Concomitant]
     Active Substance: AMINO ACIDS\CARBOHYDRATES\MINERALS\SOYBEAN OIL\VITAMINS
     Indication: CROHN^S DISEASE
     Dosage: 1200 ML/DAY
  14. INFLIXIMAB BS FOR I.V. INFUSION100 MG [NK] [Suspect]
     Active Substance: INFLIXIMAB
     Dosage: 400 MG/BODY/DAY
     Route: 042
     Dates: start: 20160818, end: 20160818
  15. INFLIXIMAB BS FOR I.V. INFUSION100 MG [NK] [Suspect]
     Active Substance: INFLIXIMAB
     Dosage: 400 MG/BODY/DAY
     Route: 042
     Dates: start: 20170830, end: 20170830
  16. INFLIXIMAB BS FOR I.V. INFUSION100 MG [NK] [Suspect]
     Active Substance: INFLIXIMAB
     Dosage: 600 MG/BODY/DAY
     Route: 042
     Dates: start: 20171220, end: 20171220
  17. INFLIXIMAB BS FOR I.V. INFUSION100 MG [NK] [Suspect]
     Active Substance: INFLIXIMAB
     Dosage: 600 MG/BODY/DAY
     Route: 042
     Dates: start: 20180801, end: 20180801
  18. MAGMITT [Concomitant]
     Active Substance: MAGNESIUM OXIDE
     Indication: CONSTIPATION PROPHYLAXIS
     Dosage: 1980 MG/DAY
     Dates: start: 20150106
  19. INFLIXIMAB BS FOR I.V. INFUSION100 MG [NK] [Suspect]
     Active Substance: INFLIXIMAB
     Dosage: 600 MG/BODY/DAY
     Route: 042
     Dates: start: 20180418, end: 20180418
  20. INFLIXIMAB BS FOR I.V. INFUSION100 MG [NK] [Suspect]
     Active Substance: INFLIXIMAB
     Dosage: 600 MG/BODY/DAY
     Route: 042
     Dates: start: 20180613, end: 20180613
  21. LANSOPRAZOLE. [Concomitant]
     Active Substance: LANSOPRAZOLE
     Indication: GASTRITIS PROPHYLAXIS
     Dosage: 15 MG/DAY
     Dates: start: 20080407
  22. SENNA [Concomitant]
     Active Substance: SENNA LEAF\SENNOSIDES\SENNOSIDES A AND B
     Indication: CONSTIPATION PROPHYLAXIS
     Dosage: 1 G/DAY
     Dates: end: 20171219

REACTIONS (3)
  - Inappropriate schedule of product administration [Unknown]
  - Overdose [Unknown]
  - Intestinal stenosis [Recovered/Resolved]

NARRATIVE: CASE EVENT DATE: 20170510
